FAERS Safety Report 4675266-3 (Version None)
Quarter: 2005Q2

REPORT INFORMATION
  Report Type: 
  Country: None (occurrence: None)
  Receive Date: 20050527
  Receipt Date: 20050208
  Transmission Date: 20051028
  Serious: Yes (Hospitalization)
  Sender: FDA-Public Use
  Company Number: JP-JNJFOC-20050505318

PATIENT
  Sex: Female
  Weight: 46 kg

DRUGS (17)
  1. REMICADE [Suspect]
     Route: 042
  2. REMICADE [Suspect]
     Route: 042
  3. REMICADE [Suspect]
     Route: 042
  4. REMICADE [Suspect]
     Route: 042
  5. REMICADE [Suspect]
     Indication: RHEUMATOID ARTHRITIS
     Route: 042
  6. METHOTREXATE [Concomitant]
  7. METHOTREXATE [Concomitant]
  8. PREDONIN [Concomitant]
     Indication: RHEUMATOID ARTHRITIS
     Route: 049
  9. VOLTAREN [Concomitant]
     Indication: RHEUMATOID ARTHRITIS
     Route: 049
  10. HYPOCA [Concomitant]
     Route: 049
  11. OPALMON [Concomitant]
     Route: 049
  12. VANCOMIN [Concomitant]
     Route: 049
  13. BENET [Concomitant]
     Route: 049
  14. BLOPRESS [Concomitant]
     Route: 049
  15. MARZULENE S [Concomitant]
     Route: 049
  16. MARZULENE S [Concomitant]
     Route: 049
  17. INH [Concomitant]
     Indication: PROPHYLAXIS

REACTIONS (2)
  - HERPES ZOSTER [None]
  - THERAPEUTIC RESPONSE DECREASED [None]
